FAERS Safety Report 25660399 (Version 1)
Quarter: 2025Q3

REPORT INFORMATION
  Report Type: Spontaneous
  Country: US (occurrence: None)
  Receive Date: 20250808
  Receipt Date: 20250808
  Transmission Date: 20251021
  Serious: No
  Sender: FDA-CTU
  Company Number: None

PATIENT
  Age: 28 Year
  Sex: Female
  Weight: 61.65 kg

DRUGS (4)
  1. ZYRTEC [Suspect]
     Active Substance: CETIRIZINE HYDROCHLORIDE
     Indication: Dust allergy
     Dosage: 40 TABLET(S) DAILY ORAL
     Route: 048
     Dates: start: 20250520, end: 20250805
  2. FERROUS SULFATE [Concomitant]
     Active Substance: FERROUS SULFATE
  3. IBUPROFEN [Concomitant]
     Active Substance: IBUPROFEN
  4. TRETINOIN [Concomitant]
     Active Substance: TRETINOIN

REACTIONS (1)
  - Pruritus [None]

NARRATIVE: CASE EVENT DATE: 20250807
